FAERS Safety Report 5201884-X (Version None)
Quarter: 2007Q1

REPORT INFORMATION
  Report Type: 
  Country: None (occurrence: None)
  Receive Date: 20070104
  Receipt Date: 20061221
  Transmission Date: 20070707
  Serious: Yes (Hospitalization)
  Sender: FDA-Public Use
  Company Number: 2006BI018988

PATIENT
  Age: 59 Year
  Sex: Female
  Weight: 81 kg

DRUGS (13)
  1. ZEVALIN [Suspect]
     Indication: BONE MARROW CONDITIONING REGIMEN
     Dosage: 0.4 MCI/KG;1X;IV
     Route: 042
     Dates: start: 20060216, end: 20060216
  2. RITUXIMAB [Concomitant]
  3. CARMUSTINE [Concomitant]
  4. ETOPOSIDE [Concomitant]
  5. ARACYTINE [Concomitant]
  6. MELPHALAN [Concomitant]
  7. CLARITHROMYCIN [Concomitant]
  8. IPRATROPIUM BROMIDE [Concomitant]
  9. POTASSIUM GLUCONATE TAB [Concomitant]
  10. ESOMEPRAZOLE MAGNESIUM [Concomitant]
  11. ACYCLOVIR [Concomitant]
  12. HYDROCORTISONE [Concomitant]
  13. ANTINEOPLASTIC AND IMMUNOSUPPRESSIVE AGENTS [Concomitant]

REACTIONS (2)
  - STEM CELL TRANSPLANT [None]
  - VIRAL INFECTION [None]
